FAERS Safety Report 16535302 (Version 4)
Quarter: 2019Q3

REPORT INFORMATION
  Report Type: Spontaneous
  Country: DE (occurrence: DE)
  Receive Date: 20190705
  Receipt Date: 20190808
  Transmission Date: 20191004
  Serious: Yes (Other)
  Sender: FDA-Public Use
  Company Number: DE-AUROBINDO-AUR-APL-2019-037677

PATIENT

DRUGS (4)
  1. KISQALI [Suspect]
     Active Substance: RIBOCICLIB
     Indication: BREAST CANCER METASTATIC
     Dosage: 600 MILLIGRAM, DAILY (SCHEMA 21 DAYS INTAKE, THAN 7 DAYS PAUSE )
     Route: 048
     Dates: start: 20180528, end: 20180728
  2. CLEXANE [Concomitant]
     Active Substance: ENOXAPARIN SODIUM
     Indication: HAEMODILUTION
     Dosage: 40 MG, UNK
     Route: 048
     Dates: start: 20180804, end: 20180915
  3. NOVAMINSULFON [Concomitant]
     Active Substance: METAMIZOLE
     Indication: PAIN
     Dosage: UNK
     Route: 048
     Dates: start: 20180804, end: 20180915
  4. LETROZOLE. [Suspect]
     Active Substance: LETROZOLE
     Indication: BREAST CANCER METASTATIC
     Dosage: 2.5 MILLIGRAM, DAILY
     Route: 048
     Dates: start: 20180528, end: 20180814

REACTIONS (5)
  - Hepatic steatosis [Unknown]
  - Inguinal hernia [Recovered/Resolved]
  - Liver function test abnormal [Recovered/Resolved]
  - Ascites [Unknown]
  - Cholelithiasis [Unknown]

NARRATIVE: CASE EVENT DATE: 20180802
